FAERS Safety Report 9549024 (Version 2)
Quarter: 2013Q4

REPORT INFORMATION
  Report Type: Report from Study
  Country: IT (occurrence: IT)
  Receive Date: 20130924
  Receipt Date: 20131016
  Transmission Date: 20140711
  Serious: Yes (Death)
  Sender: FDA-Public Use
  Company Number: IT-PFIZER INC-2013270610

PATIENT
  Age: 69 Year
  Sex: Male
  Weight: 66 kg

DRUGS (11)
  1. SUTENT [Suspect]
     Indication: RENAL CANCER
     Dosage: 50 MG, CYCLIC (4 WEEKS ON, 2 WEEKS OFF, ONCE DAILY)
     Route: 048
     Dates: start: 20130823
  2. LANSOPRAZOLE [Concomitant]
     Indication: PROPHYLAXIS
     Dosage: 20 MG, DAILY
     Route: 048
     Dates: start: 20120430
  3. INSULIN LISPRO [Concomitant]
     Indication: DIABETES MELLITUS
     Dosage: 8 IU, DAILY
     Route: 058
     Dates: start: 1990
  4. SIMVASTATIN [Concomitant]
     Indication: DYSLIPIDAEMIA
     Dosage: 10 MG, DAILY
     Route: 048
     Dates: start: 2007
  5. GLIBENCLAMIDE/METFORMIN [Concomitant]
     Indication: DIABETES MELLITUS
     Dosage: 5 +400 MG, 3X/DAY
     Route: 048
     Dates: start: 1990
  6. SIDERAL FORTE [Concomitant]
     Indication: ANAEMIA PROPHYLAXIS
     Dosage: 11.9 G, DAILY
     Route: 048
     Dates: start: 20130225
  7. ERYTHROPOIETIN [Concomitant]
     Indication: ANAEMIA PROPHYLAXIS
     Dosage: 30000 IU, 1X/DAY
     Route: 058
     Dates: start: 20130225, end: 20130911
  8. FOLIC ACID [Concomitant]
     Indication: ANAEMIA PROPHYLAXIS
     Dosage: 5 MG, DAILY
     Route: 048
     Dates: start: 20130225
  9. NADROPARIN [Concomitant]
     Indication: THROMBOSIS PROPHYLAXIS
     Dosage: 11400 IU, DAILY
     Route: 058
     Dates: start: 20130213
  10. FUROSEMIDE [Concomitant]
     Indication: HYPERTENSION
     Dosage: 25 MG, TIW (THREE TIMES A WEEK)
     Route: 048
     Dates: start: 2007
  11. TAMSULOSIN [Concomitant]
     Indication: BENIGN PROSTATIC HYPERPLASIA
     Dosage: 0.4 MG, DAILY
     Route: 048
     Dates: start: 2002

REACTIONS (2)
  - Disease progression [Fatal]
  - Renal cancer [Fatal]
